FAERS Safety Report 8038007-8 (Version None)
Quarter: 2012Q1

REPORT INFORMATION
  Report Type: 
  Country: None (occurrence: None)
  Receive Date: 20120111
  Receipt Date: 20120106
  Transmission Date: 20120608
  Serious: Yes (Hospitalization, Other)
  Sender: FDA-Public Use
  Company Number: US-ABBOTT-12P-163-0890033-00

PATIENT
  Sex: Male
  Weight: 78.088 kg

DRUGS (5)
  1. CRESTOR [Concomitant]
     Indication: BLOOD CHOLESTEROL
  2. BENICAR [Concomitant]
     Indication: PRODUCT USED FOR UNKNOWN INDICATION
  3. ASPIRIN [Concomitant]
     Indication: PRODUCT USED FOR UNKNOWN INDICATION
  4. NIASPAN [Suspect]
     Indication: BLOOD CHOLESTEROL
     Dosage: AT BEDTIME
     Dates: start: 20020101
  5. AVAPRO [Concomitant]
     Indication: BLOOD PRESSURE

REACTIONS (5)
  - CORONARY ARTERY BYPASS [None]
  - FLUSHING [None]
  - ERYTHEMA [None]
  - CARDIAC DISORDER [None]
  - PARAESTHESIA [None]
